FAERS Safety Report 14504983 (Version 1)
Quarter: 2018Q1

REPORT INFORMATION
  Report Type: Spontaneous
  Country: US (occurrence: US)
  Receive Date: 20180208
  Receipt Date: 20180208
  Transmission Date: 20180509
  Serious: No
  Sender: FDA-Public Use
  Company Number: US-JNJFOC-20171230841

PATIENT
  Age: 74 Year
  Sex: Female

DRUGS (12)
  1. ASCORBIC ACID. [Concomitant]
     Active Substance: ASCORBIC ACID
  2. LISINOPRIL. [Concomitant]
     Active Substance: LISINOPRIL
  3. GINKGO BILOBA [Concomitant]
     Active Substance: GINKGO
  4. TURMERIC [Concomitant]
     Active Substance: HERBALS\TURMERIC
  5. SINGULAIR [Concomitant]
     Active Substance: MONTELUKAST SODIUM
  6. CAPSICUM ANNUUM [Concomitant]
  7. VITAMIN B COMPLEX [Concomitant]
     Active Substance: CYANOCOBALAMIN\DEXPANTHENOL\NIACINAMIDE\PYRIDOXINE HYDROCHLORIDE\RIBOFLAVIN 5^-PHOSPHATE SODIUM\THIAMINE HYDROCHLORIDE\VITAMIN B COMPLEX
  8. ECHINACEA [Concomitant]
     Active Substance: ECHINACEA, UNSPECIFIED
  9. METFORMIN [Concomitant]
     Active Substance: METFORMIN HYDROCHLORIDE
  10. IMBRUVICA [Suspect]
     Active Substance: IBRUTINIB
     Indication: ACUTE MYELOID LEUKAEMIA
     Route: 048
     Dates: start: 20171113, end: 201711
  11. EVENING PRIMROSE OIL [Concomitant]
     Active Substance: EVENING PRIMROSE OIL\HERBALS
  12. OLEA EUROPAEA [Concomitant]
     Route: 065

REACTIONS (3)
  - Product use in unapproved indication [Unknown]
  - Tooth extraction [Unknown]
  - Off label use [Unknown]

NARRATIVE: CASE EVENT DATE: 20171113
